FAERS Safety Report 6512432-6 (Version None)
Quarter: 2009Q4

REPORT INFORMATION
  Report Type: 
  Country: None (occurrence: None)
  Receive Date: 20091222
  Receipt Date: 20090713
  Transmission Date: 20100525
  Serious: No
  Sender: FDA-Public Use
  Company Number: US-ASTRAZENECA-2009UW19504

PATIENT
  Age: 65 Year
  Sex: Female
  Weight: 66.7 kg

DRUGS (5)
  1. CRESTOR [Suspect]
     Route: 048
     Dates: start: 20090630
  2. ALTACE [Concomitant]
  3. TRIAMTERENE AND HYDROCHLOROTHIAZIDE [Concomitant]
  4. CELEBREX [Concomitant]
  5. OTC ALLERGY RELIEF [Concomitant]

REACTIONS (1)
  - VERTIGO [None]
